FAERS Safety Report 7655464-7 (Version None)
Quarter: 2011Q3

REPORT INFORMATION
  Report Type: 
  Country: None (occurrence: None)
  Receive Date: 20110804
  Receipt Date: 20110802
  Transmission Date: 20111222
  Serious: No
  Sender: FDA-Public Use
  Company Number: US-PFIZER INC-2011177238

PATIENT
  Sex: Female

DRUGS (8)
  1. ALAVERT [Suspect]
     Indication: RHINITIS ALLERGIC
     Dosage: 10 MG, DAILY
     Dates: start: 20100101
  2. IBUPROFEN [Concomitant]
     Indication: ARTHRITIS
     Dosage: 600 MG, AS NEEDED
  3. PREMARIN [Concomitant]
     Indication: HORMONE REPLACEMENT THERAPY
     Dosage: 0.625 MG, DAILY
  4. DETROL LA [Concomitant]
     Indication: BLADDER DISORDER
     Dosage: 4 MG, DAILY
  5. SINGULAIR [Interacting]
     Dosage: 5 MG, UNK
     Dates: start: 20110720
  6. PROZAC [Concomitant]
     Indication: ANXIETY
     Dosage: 5 MG, UNK
  7. ALAVERT [Interacting]
     Dosage: SPLITTING THE 10 MG TO 5 MG
     Dates: start: 20110101
  8. SINGULAIR [Interacting]
     Indication: RHINITIS ALLERGIC
     Dosage: 4 MG, UNK

REACTIONS (4)
  - GINGIVAL PAIN [None]
  - GINGIVAL DISORDER [None]
  - DISCOMFORT [None]
  - DRUG INTERACTION [None]
